FAERS Safety Report 4379717-3 (Version None)
Quarter: 2004Q2

REPORT INFORMATION
  Report Type: 
  Country: None (occurrence: None)
  Receive Date: 20040617
  Receipt Date: 20040614
  Transmission Date: 20050107
  Serious: Yes (Hospitalization)
  Sender: FDA-Public Use
  Company Number: DEPFP-S-20040003

PATIENT
  Age: 66 Year
  Sex: Female

DRUGS (3)
  1. NAVELBINE [Suspect]
     Route: 042
     Dates: start: 20040505, end: 20040505
  2. GEMZAR [Suspect]
  3. FILGASTRIM [Concomitant]

REACTIONS (5)
  - CHILLS [None]
  - DIARRHOEA [None]
  - GENERAL PHYSICAL HEALTH DETERIORATION [None]
  - LEUKOPENIA [None]
  - PYREXIA [None]
